FAERS Safety Report 8369176-8 (Version None)
Quarter: 2012Q1

REPORT INFORMATION
  Report Type: 
  Country: None (occurrence: None)
  Receive Date: 20120323
  Receipt Date: 20111121
  Transmission Date: 20120608
  Serious: Yes (Hospitalization)
  Sender: FDA-Public Use
  Company Number: 163-21880-11113013

PATIENT
  Age: 68 Year
  Sex: Male

DRUGS (17)
  1. PRAVASTATIN [Concomitant]
  2. ALLEGRA D (ALLEGRA-D - SLOW RELEASE) [Concomitant]
  3. L-CARNITINE [Concomitant]
  4. NIACIN [Concomitant]
  5. NITROSTAT [Concomitant]
  6. NIFEDICAL XL (NIFEDIPINE) [Concomitant]
  7. FISH OIL [Concomitant]
  8. GABAPENTIN [Concomitant]
  9. CARVEDILOL [Concomitant]
  10. FLUVIRIN (INFLUENZA VIRUS VACCINE POLYVALENT) [Concomitant]
  11. M.V.I. [Concomitant]
  12. REVLIMID [Suspect]
     Indication: MULTIPLE MYELOMA
     Dosage: 25 MG, 1 IN 1 D, PO : 15 MG, DAILY X 21 DAYS, PO
     Route: 048
     Dates: start: 20111001
  13. REVLIMID [Suspect]
     Indication: MULTIPLE MYELOMA
     Dosage: 25 MG, 1 IN 1 D, PO : 15 MG, DAILY X 21 DAYS, PO
     Route: 048
     Dates: start: 20110901, end: 20110101
  14. DEXAMETHASONE [Concomitant]
  15. PLAVIX [Concomitant]
  16. CO Q10 (UBIDECARENONE) [Concomitant]
  17. LISINOPRIL [Concomitant]

REACTIONS (1)
  - MYOCARDIAL INFARCTION [None]
